FAERS Safety Report 9585399 (Version 1)
Quarter: 2013Q4

REPORT INFORMATION
  Report Type: Spontaneous
  Country: US (occurrence: US)
  Receive Date: 20131002
  Receipt Date: 20131002
  Transmission Date: 20140711
  Serious: No
  Sender: FDA-Public Use
  Company Number: US-AMGEN-USASP2013063983

PATIENT
  Age: 33 Year
  Sex: Male
  Weight: 102.4 kg

DRUGS (4)
  1. ENBREL [Suspect]
     Indication: PRODUCT USED FOR UNKNOWN INDICATION
     Dosage: 50 MG, QWK
     Route: 058
  2. FLUOXETINE [Concomitant]
     Dosage: 10 MG, UNK
  3. LEVOTHYROXIN [Concomitant]
     Dosage: 112 MCG
  4. VITAMIN D                          /00107901/ [Concomitant]
     Dosage: 50000 UNIT, UNK

REACTIONS (2)
  - Fatigue [Unknown]
  - Vitamin D decreased [Unknown]
